FAERS Safety Report 8310678-8 (Version None)
Quarter: 2012Q2

REPORT INFORMATION
  Report Type: 
  Country: None (occurrence: None)
  Receive Date: 20120425
  Receipt Date: 20120418
  Transmission Date: 20120825
  Serious: Yes (Other)
  Sender: FDA-Public Use
  Company Number: CA-ROCHE-1061171

PATIENT
  Sex: Female
  Weight: 74.91 kg

DRUGS (13)
  1. TYLENOL (CAPLET) [Concomitant]
  2. NAPROXEN [Concomitant]
  3. DIPHENHYDRAMINE [Concomitant]
     Indication: PREMEDICATION
     Route: 048
     Dates: start: 20110209, end: 20110209
  4. METHYLPREDNISOLONE [Concomitant]
     Indication: PREMEDICATION
     Route: 042
     Dates: start: 20110209, end: 20110209
  5. ATIVAN [Concomitant]
  6. DOCUSATE SODIUM [Concomitant]
  7. VENLAFAXINE [Concomitant]
  8. ACETAMINOPHEN [Concomitant]
     Indication: PREMEDICATION
     Route: 048
     Dates: start: 20110209, end: 20110209
  9. FOLIC ACID [Concomitant]
  10. HYDROCHLOROTHIAZIDE [Concomitant]
  11. MABTHERA [Suspect]
     Indication: RHEUMATOID ARTHRITIS
     Route: 042
     Dates: start: 20110127, end: 20110209
  12. CALCIUM [Concomitant]
  13. STOOL SOFTENER (NAME UNK) [Concomitant]

REACTIONS (1)
  - GALLBLADDER DISORDER [None]
